FAERS Safety Report 6381518-1 (Version None)
Quarter: 2009Q3

REPORT INFORMATION
  Report Type: 
  Country: None (occurrence: None)
  Receive Date: 20090925
  Receipt Date: 20090914
  Transmission Date: 20100115
  Serious: Yes (Hospitalization)
  Sender: FDA-Public Use
  Company Number: B0594326A

PATIENT
  Age: 11 Year
  Sex: Female
  Weight: 67.8581 kg

DRUGS (8)
  1. FONDAPARINUX SODIUM [Suspect]
  2. WARFARIN SODIUM [Suspect]
  3. CEPHAZOLIN SODIUM (FORMULATION UNKNOWN) (GENERIC) (CEFAZOLIN SODIUM) [Suspect]
  4. RANITIDINE HYDROCHLORIDE [Suspect]
  5. CHLORAL HYDRATE (FORMULATION UNKNOWN) (CHLORAL HYDRATE) [Suspect]
  6. BIVALIRUDIN [Concomitant]
  7. ARGATROBAN [Concomitant]
  8. CORTICOSTEROID [Concomitant]

REACTIONS (20)
  - ABDOMINAL PAIN [None]
  - ANXIETY [None]
  - BLOOD CREATININE INCREASED [None]
  - DEEP VEIN THROMBOSIS [None]
  - DRUG EFFECT INCREASED [None]
  - DRUG INEFFECTIVE [None]
  - DRUG INTERACTION [None]
  - HYPERTENSION [None]
  - INTERNATIONAL NORMALISED RATIO INCREASED [None]
  - KLEBSIELLA SEPSIS [None]
  - PLATELET COUNT DECREASED [None]
  - PNEUMOTHORAX [None]
  - PULMONARY EMBOLISM [None]
  - PULMONARY HAEMORRHAGE [None]
  - PULMONARY HYPERTENSION [None]
  - RENAL VEIN THROMBOSIS [None]
  - RESPIRATORY DISTRESS [None]
  - RESPIRATORY FAILURE [None]
  - THROMBOSIS [None]
  - VENA CAVA THROMBOSIS [None]
